FAERS Safety Report 11064443 (Version 2)
Quarter: 2015Q2

REPORT INFORMATION
  Report Type: Report from Study
  Country: BR (occurrence: BR)
  Receive Date: 20150424
  Receipt Date: 20150520
  Transmission Date: 20150821
  Serious: Yes (Hospitalization, Other)
  Sender: FDA-Public Use
  Company Number: PHHY2015BR044508

PATIENT
  Age: 91 Year
  Sex: Female
  Weight: 44 kg

DRUGS (9)
  1. EXELON [Suspect]
     Active Substance: RIVASTIGMINE TARTRATE
     Indication: DEMENTIA
     Dosage: 1.5 MG, BID
     Route: 048
     Dates: end: 201411
  2. DAFLON 500 [Concomitant]
     Indication: VARICOSE VEIN
     Dosage: 1 DF, BID
     Route: 048
  3. LEVOID [Concomitant]
     Active Substance: LEVOTHYROXINE
     Indication: HYPOTHYROIDISM
     Dosage: 1 DF, QD
     Route: 048
  4. EXELON [Suspect]
     Active Substance: RIVASTIGMINE TARTRATE
     Dosage: 3 MG, BID
     Route: 048
     Dates: start: 201411, end: 201502
  5. ALOIS [Concomitant]
     Active Substance: MEMANTINE
     Indication: HALLUCINATION
     Dosage: 10 MG, BID
     Route: 048
  6. NORIPURUM [Concomitant]
     Active Substance: IRON POLYMALTOSE
     Indication: ANAEMIA
     Dosage: 1 DF, QD (BEFORE THE LUNCH)
     Route: 048
  7. NEOTIAPIM [Concomitant]
     Active Substance: QUETIAPINE
     Indication: INSOMNIA
     Dosage: 25 MG, QD (AT NIGHT)
     Route: 048
  8. LORAX//LORAZEPAM [Concomitant]
     Indication: INSOMNIA
     Dosage: 2 MG, QD (AT NIGHT)
     Route: 048
  9. ADDERA D3 [Concomitant]
     Active Substance: CHOLECALCIFEROL
     Indication: BLOOD CALCIUM
     Dosage: 1 DF, QW
     Route: 048

REACTIONS (8)
  - Weight decreased [Unknown]
  - Confusional state [Unknown]
  - Anxiety [Unknown]
  - Yellow skin [Recovered/Resolved]
  - Insomnia [Unknown]
  - Pancreatic carcinoma [Not Recovered/Not Resolved]
  - Gait disturbance [Recovering/Resolving]
  - Drug ineffective [Unknown]

NARRATIVE: CASE EVENT DATE: 201412
